FAERS Safety Report 9732133 (Version 1)
Quarter: 2013Q4

REPORT INFORMATION
  Report Type: Spontaneous
  Country: US (occurrence: US)
  Receive Date: 20131204
  Receipt Date: 20131204
  Transmission Date: 20140711
  Serious: No
  Sender: FDA-Public Use
  Company Number: US-PFIZER INC-2013345417

PATIENT
  Age: 59 Year
  Sex: Female
  Weight: 74.83 kg

DRUGS (8)
  1. LYRICA [Suspect]
     Indication: NEURALGIA
     Dosage: 50 MG, 3X/DAY
     Route: 048
     Dates: start: 20130812
  2. LYRICA [Suspect]
     Dosage: UNK, 3X/DAY
     Route: 048
     Dates: end: 2013
  3. LYRICA [Suspect]
     Dosage: 50 MG, 3X/DAY
     Route: 048
     Dates: start: 2013, end: 2013
  4. LYRICA [Suspect]
     Dosage: 100 MG (TWO CAPSULES OF 50MG), 3X/DAY
     Route: 048
     Dates: start: 2013
  5. ZOCOR [Concomitant]
     Dosage: 80 MG (TWO TABLETS OF 40MG), 1X/DAY
  6. PERCOCET [Concomitant]
     Dosage: [OXYCODONE 10MG] /[ACETAMINOPHEN 325MG], UNK
  7. ZANAFLEX [Concomitant]
     Dosage: 4 MG, 2X/DAY
  8. MOBIC [Concomitant]
     Dosage: 7.5 MG, 1X/DAY

REACTIONS (1)
  - Weight increased [Unknown]
